FAERS Safety Report 9432184 (Version 2)
Quarter: 2013Q3

REPORT INFORMATION
  Report Type: Spontaneous
  Country: FR (occurrence: None)
  Receive Date: 20130726
  Receipt Date: 20130829
  Transmission Date: 20140515
  Serious: Yes (Hospitalization)
  Sender: FDA-Public Use
  Company Number: 7225229

PATIENT
  Age: 79 Year
  Sex: Female

DRUGS (8)
  1. LEVOTHYROX [Suspect]
     Indication: HYPOTHYROIDISM
     Dosage: SEVERAL YEARS AGO - ONGOING
     Route: 048
  2. NAFTIDROFURYL [Suspect]
     Dosage: SEVERAL YEARS AGO - ONGOING
     Route: 048
  3. ARIXTRA [Suspect]
     Indication: PROPHYLAXIS
     Route: 058
     Dates: start: 20130418, end: 20130430
  4. KARDEGIC [Suspect]
     Indication: PROPHYLAXIS
     Dosage: SEVERAL YEARS AGO - ONGOING
     Route: 048
  5. RAMIPRIL [Suspect]
     Indication: HYPERTENSION
     Dosage: SEVERAL YEARS AGO - ONGOING
     Route: 048
  6. AVLOCARDYL [Suspect]
     Indication: HYPERTENSION
     Dosage: SEVERAL YEARS AGO - ONGOING
     Route: 048
  7. TAHOR [Suspect]
     Indication: PROPHYLAXIS
     Dosage: SEVERAL YEARS AGO - ONGOING
     Route: 048
  8. DAFALGAN [Suspect]
     Indication: PAIN
     Dosage: SEVERAL YEARS AGO - ONGOING
     Route: 048

REACTIONS (5)
  - Muscle haemorrhage [None]
  - Blood pressure increased [None]
  - Pain in extremity [None]
  - Hypotension [None]
  - Red blood cell count decreased [None]
